FAERS Safety Report 9229925 (Version 1)
Quarter: 2013Q1

REPORT INFORMATION
  Report Type: Spontaneous
  Country: US (occurrence: None)
  Receive Date: 20121031
  Receipt Date: 20121031
  Transmission Date: 20140127
  Serious: Yes (Other)
  Sender: FDA-Public Use
  Company Number: SP03195

PATIENT
  Age: 56 Year
  Sex: Female

DRUGS (1)
  1. VISICOL [Suspect]
     Indication: BOWEL PREPARATION
     Route: 048
     Dates: start: 20050505

REACTIONS (1)
  - Renal failure [None]
